FAERS Safety Report 6975099-9 (Version None)
Quarter: 2010Q3

REPORT INFORMATION
  Report Type: 
  Country: None (occurrence: None)
  Receive Date: 20100910
  Receipt Date: 20090304
  Transmission Date: 20110219
  Serious: No
  Sender: FDA-Public Use
  Company Number: US-WYE-H07968709

PATIENT
  Age: 56 Year
  Sex: Female
  Weight: 38.59 kg

DRUGS (2)
  1. ADVIL PM [Suspect]
     Indication: INSOMNIA
     Dosage: 1 CAPLET AND ANOTHER 2 HOURS LATER, THEN AGAIN IN TWO HOURS
     Route: 048
     Dates: start: 20090125, end: 20090127
  2. IBUPROFEN [Concomitant]

REACTIONS (3)
  - DRUG INEFFECTIVE [None]
  - OVERDOSE [None]
  - RESTLESS LEGS SYNDROME [None]
